FAERS Safety Report 8267260-0 (Version None)
Quarter: 2012Q2

REPORT INFORMATION
  Report Type: 
  Country: None (occurrence: None)
  Receive Date: 20120405
  Receipt Date: 20120405
  Transmission Date: 20120825
  Serious: No
  Sender: FDA-Public Use
  Company Number: None

PATIENT
  Sex: Female
  Weight: 80 kg

DRUGS (2)
  1. TAXOL [Suspect]
     Dosage: 340 MG
  2. CARBOPLATIN [Suspect]
     Dosage: 756 MG

REACTIONS (1)
  - NEUTROPHIL COUNT DECREASED [None]
